FAERS Safety Report 4562127-3 (Version None)
Quarter: 2005Q1

REPORT INFORMATION
  Report Type: 
  Country: None (occurrence: None)
  Receive Date: 20050125
  Receipt Date: 20050111
  Transmission Date: 20050727
  Serious: No
  Sender: FDA-Public Use
  Company Number: 05H-163-0286375-00

PATIENT

DRUGS (3)
  1. LEUCOVORIN CALCIUM [Suspect]
     Indication: COLORECTAL CANCER
     Dosage: 500 MG/M2, ONCE A WEEK, CONTINUOUS INFUSION
  2. FLUOROURACIL [Suspect]
     Indication: COLORECTAL CANCER
     Dosage: 2600 MG/M2, ONCE A WEEK
  3. N-(PHOSPHONACETYL) -L-ASPARTATE [Suspect]
     Indication: COLORECTAL CANCER
     Dosage: 250 MG/M2, ONCE A WEEK

REACTIONS (1)
  - HYPERGLYCAEMIA [None]
